FAERS Safety Report 7673680-5 (Version None)
Quarter: 2011Q3

REPORT INFORMATION
  Report Type: 
  Country: None (occurrence: None)
  Receive Date: 20110810
  Receipt Date: 20110801
  Transmission Date: 20111222
  Serious: Yes (Other)
  Sender: FDA-Public Use
  Company Number: US-TYCO HEALTHCARE/MALLINCKRODT-T201101509

PATIENT
  Sex: Male

DRUGS (5)
  1. FENTANYL-100 [Suspect]
     Indication: PAIN
     Dosage: 25 UG/HR, ONE PATCH Q 72 HRS
     Route: 062
     Dates: start: 20110721
  2. BUPROPION HCL [Concomitant]
     Dosage: 300 MG, QD
     Route: 048
  3. OXYCODONE HCL AND ACETAMINOPHEN [Concomitant]
     Dosage: 2 TABS PRN
     Route: 048
  4. TRAZODONE HCL [Concomitant]
     Dosage: 300 MG, QD
     Route: 048
  5. BUPROPION HCL [Concomitant]
     Dosage: 150 MG, QD
     Route: 048

REACTIONS (2)
  - CONFUSIONAL STATE [None]
  - DISORIENTATION [None]
